FAERS Safety Report 11427449 (Version 2)
Quarter: 2020Q2

REPORT INFORMATION
  Report Type: Report from Study
  Country: US (occurrence: US)
  Receive Date: 20150827
  Receipt Date: 20200407
  Transmission Date: 20200713
  Serious: Yes (Hospitalization, Other)
  Sender: FDA-Public Use
  Company Number: US-SA-2015SA006142

PATIENT
  Age: 52 Year
  Sex: Female

DRUGS (1)
  1. AGALSIDASE BETA [Suspect]
     Active Substance: AGALSIDASE BETA
     Indication: FABRY^S DISEASE
     Dosage: DOSE: 135 (UNITS NOT PROVIDED); FREQUENCY: Q2
     Route: 041
     Dates: start: 20081023

REACTIONS (7)
  - Malaise [Unknown]
  - Paranoia [Not Recovered/Not Resolved]
  - Mental impairment [Not Recovered/Not Resolved]
  - Dizziness [Unknown]
  - Abdominal discomfort [Unknown]
  - Hypoaesthesia oral [Unknown]
  - Inappropriate schedule of product administration [Unknown]

NARRATIVE: CASE EVENT DATE: 20150109
